FAERS Safety Report 12340398 (Version 1)
Quarter: 2016Q2

REPORT INFORMATION
  Report Type: Spontaneous
  Country: US (occurrence: None)
  Receive Date: 20160505
  Receipt Date: 20160505
  Transmission Date: 20160815
  Serious: Yes (Disabling, Other)
  Sender: FDA-Public Use
  Company Number: None

PATIENT
  Age: 28 Year
  Sex: Female
  Weight: 50.8 kg

DRUGS (1)
  1. PARAGARD T 380A [Suspect]
     Active Substance: COPPER

REACTIONS (5)
  - Insomnia [None]
  - Disturbance in attention [None]
  - Allergy to metals [None]
  - Feeling abnormal [None]
  - Complication associated with device [None]

NARRATIVE: CASE EVENT DATE: 20140115
